FAERS Safety Report 9606818 (Version 2)
Quarter: 2013Q4

REPORT INFORMATION
  Report Type: Spontaneous
  Country: US (occurrence: US)
  Receive Date: 20131008
  Receipt Date: 20131008
  Transmission Date: 20140711
  Serious: No
  Sender: FDA-Public Use
  Company Number: US-AMGEN-USASP2013057686

PATIENT
  Age: 54 Year
  Sex: Female
  Weight: 58.5 kg

DRUGS (4)
  1. PROLIA [Suspect]
     Indication: OSTEOPOROSIS POSTMENOPAUSAL
     Dosage: 60 MG, ONE TIME DOSE
     Route: 058
     Dates: start: 20130805
  2. CALCIUM [Concomitant]
     Indication: OSTEOPOROSIS
     Dosage: 600 MG, ONE TIME DOSE
     Route: 048
     Dates: start: 20050623
  3. VITAMIN D3 [Concomitant]
     Indication: OSTEOPOROSIS
     Dosage: 10000 IU, Q2WK
     Route: 048
     Dates: start: 20110602
  4. CITALOPRAM                         /00582602/ [Concomitant]
     Indication: MENOPAUSE
     Dosage: 10 MG, ONE TIME DOSE
     Route: 048
     Dates: start: 20130606

REACTIONS (12)
  - Myalgia [Recovering/Resolving]
  - Breast pain [Recovering/Resolving]
  - Arthralgia [Recovering/Resolving]
  - Asthenia [Recovering/Resolving]
  - Joint stiffness [Unknown]
  - Neck pain [Unknown]
  - Mobility decreased [Recovering/Resolving]
  - BRCA1 gene mutation [Unknown]
  - Anxiety [Unknown]
  - Back pain [Recovering/Resolving]
  - Musculoskeletal pain [Recovering/Resolving]
  - Pain in extremity [Recovering/Resolving]
